FAERS Safety Report 5889041-5 (Version None)
Quarter: 2008Q3

REPORT INFORMATION
  Report Type: 
  Country: None (occurrence: None)
  Receive Date: 20080919
  Receipt Date: 20080303
  Transmission Date: 20090109
  Serious: No
  Sender: FDA-Public Use
  Company Number: US-KINGPHARMUSA00001-K200800268

PATIENT

DRUGS (3)
  1. SONATA [Suspect]
     Indication: INSOMNIA
     Dosage: 30 MG, QHS
     Route: 048
  2. SONATA [Suspect]
     Dosage: 100 MG, QHS
  3. LAMICTAL [Concomitant]
     Indication: DEPRESSION
     Dosage: 150 MG, QD
     Dates: start: 20080101

REACTIONS (3)
  - DRUG INEFFECTIVE [None]
  - INCORRECT DOSE ADMINISTERED [None]
  - INSOMNIA [None]
